FAERS Safety Report 14908220 (Version 3)
Quarter: 2018Q2

REPORT INFORMATION
  Report Type: Spontaneous
  Country: JP (occurrence: JP)
  Receive Date: 20180517
  Receipt Date: 20180607
  Transmission Date: 20180711
  Serious: Yes (Other)
  Sender: FDA-Public Use
  Company Number: JP-ASTRAZENECA-2018SE63494

PATIENT
  Age: 78 Year
  Sex: Male

DRUGS (1)
  1. IRESSA [Suspect]
     Active Substance: GEFITINIB
     Indication: LUNG ADENOCARCINOMA
     Dosage: 150 MG DAILY (IT WAS STARTED WHEN THE PATIENT WAS 75 YEARS OLD).
     Route: 048

REACTIONS (1)
  - Pneumatosis intestinalis [Recovered/Resolved]
